FAERS Safety Report 4500658-2 (Version None)
Quarter: 2004Q4

REPORT INFORMATION
  Report Type: 
  Country: None (occurrence: None)
  Receive Date: 20041112
  Receipt Date: 20041112
  Transmission Date: 20050328
  Serious: Yes (Hospitalization)
  Sender: FDA-Public Use
  Company Number: None

PATIENT
  Age: 74 Year
  Sex: Female
  Weight: 48.08 kg

DRUGS (10)
  1. WARFARIN SODIUM [Suspect]
     Indication: ARRHYTHMIA
     Dosage: 5 MG ALT 2.5 MG DAILY CHRONIC
  2. ASPIRIN [Suspect]
     Indication: ARRHYTHMIA
     Dosage: 81 MG PO DAILY CHRONIC
     Route: 048
  3. ASPIRIN [Suspect]
     Indication: MYOCARDIAL INFARCTION
     Dosage: 81 MG PO DAILY CHRONIC
     Route: 048
  4. ALTACE [Concomitant]
  5. NORVASC [Concomitant]
  6. HYDROCHLOROTHIAZIDE [Concomitant]
  7. ARICEPT [Concomitant]
  8. BUSPAR [Concomitant]
  9. ASPIRIN [Concomitant]
  10. COUMADIN [Concomitant]

REACTIONS (6)
  - FLUID INTAKE REDUCED [None]
  - GASTRITIS [None]
  - INTERNATIONAL NORMALISED RATIO INCREASED [None]
  - MARKEDLY REDUCED DIETARY INTAKE [None]
  - MELAENA [None]
  - NAUSEA [None]
